FAERS Safety Report 14018428 (Version 2)
Quarter: 2017Q4

REPORT INFORMATION
  Report Type: Spontaneous
  Country: US (occurrence: US)
  Receive Date: 20170928
  Receipt Date: 20171114
  Transmission Date: 20180321
  Serious: Yes (Hospitalization, Other)
  Sender: FDA-Public Use
  Company Number: US-AMGEN-USASP2017143460

PATIENT
  Age: 59 Year

DRUGS (1)
  1. REPATHA [Suspect]
     Active Substance: EVOLOCUMAB
     Indication: PRODUCT USED FOR UNKNOWN INDICATION
     Dosage: 140 MG, Q2WK
     Route: 065

REACTIONS (4)
  - Fall [Unknown]
  - Hypoglycaemia [Unknown]
  - Haematoma [Unknown]
  - Seizure [Unknown]

NARRATIVE: CASE EVENT DATE: 2017
